FAERS Safety Report 9494697 (Version 2)
Quarter: 2013Q3

REPORT INFORMATION
  Report Type: Spontaneous
  Country: JP (occurrence: JP)
  Receive Date: 20130903
  Receipt Date: 20130910
  Transmission Date: 20140515
  Serious: No
  Sender: FDA-Public Use
  Company Number: JP-JNJFOC-20130900550

PATIENT
  Age: 48 Year
  Sex: Male

DRUGS (1)
  1. TRAMCET [Suspect]
     Indication: PAIN
     Dosage: 1 PER 1 DAY
     Route: 048
     Dates: start: 20121204, end: 20130827

REACTIONS (1)
  - Muscle spasms [Recovered/Resolved]
